FAERS Safety Report 7740809-X (Version None)
Quarter: 2011Q3

REPORT INFORMATION
  Report Type: 
  Country: None (occurrence: None)
  Receive Date: 20110909
  Receipt Date: 20110825
  Transmission Date: 20111222
  Serious: Yes (Hospitalization, Other)
  Sender: FDA-Public Use
  Company Number: JP-TYCO HEALTHCARE/MALLINCKRODT-T201101577

PATIENT
  Sex: Male
  Weight: 55.5 kg

DRUGS (21)
  1. METHADONE HCL [Suspect]
     Indication: CANCER PAIN
     Dosage: 60 MG/DAY
     Route: 048
     Dates: start: 20110615, end: 20110615
  2. ACONITE [Concomitant]
     Dosage: 3 G/DAY TID
  3. NICOTINELL                         /01033301/ [Concomitant]
     Dosage: 17.6 MG/DAY ONE SHEET DAILY
     Dates: start: 20110720
  4. DECADRON [Concomitant]
     Dosage: 1 MG, QD
  5. ZOLEDRONIC ACID [Concomitant]
     Dosage: 4 MG/TIME ONCE A MONTH
     Route: 042
  6. TSUMURA SAIKOKARYUKOTEUBOREITO [Concomitant]
     Dosage: 2 G/DAY TID
  7. ETHINYL ESTRADIOL [Concomitant]
     Dosage: 1.5 MG/DAY TID
     Dates: start: 20110709
  8. ADALAT [Concomitant]
     Dosage: 20 MG, QD
  9. GLYCERIN                           /00200601/ [Concomitant]
     Indication: CONSTIPATION
     Dosage: 60 ML/TIME AS NEEDED
     Dates: start: 20110713
  10. METHADONE HCL [Suspect]
     Dosage: 70 MG, QD
     Route: 048
     Dates: start: 20110816, end: 20110822
  11. VOLTAREN [Concomitant]
     Indication: CANCER PAIN
     Dosage: 50 MG/TIME AS NEEDED
  12. OXINORM                            /00547301/ [Concomitant]
     Indication: CANCER PAIN
     Dosage: 10 MG/TIME AS NEEDED
  13. TSUMURA GOSHAJINKIGAN [Concomitant]
     Dosage: 3.3 G/DAY TID
  14. TSUMARA KEISHIBUKURYOGAN [Concomitant]
     Dosage: 3.75 G/DAY TID
  15. LASIX [Concomitant]
     Dosage: 20 MG/DAY ONCE DAILY
     Dates: start: 20110723
  16. ZOLADEX [Concomitant]
     Dosage: 10.8 MG/TIME, ONCE EVERY THREE MONTHS
  17. ALMARL [Concomitant]
     Dosage: 10 MG/DAY
  18. TSUMURA HOCHUEKKITO [Concomitant]
     Dosage: 5 G/DAY TID
  19. MAGMITT [Concomitant]
     Dosage: 990 MG/DAY TID
     Dates: start: 20110624
  20. FAMOTIDINE [Concomitant]
     Dosage: 40 MG/DAY BID
     Dates: start: 20110621
  21. PURSENNID                          /00142207/ [Concomitant]
     Indication: CONSTIPATION
     Dosage: 24 MG/TIME AS NEEDED
     Dates: start: 20110715

REACTIONS (5)
  - DELIRIUM [None]
  - INITIAL INSOMNIA [None]
  - PAIN [None]
  - ELECTROCARDIOGRAM QT PROLONGED [None]
  - FALL [None]
